FAERS Safety Report 5936523-3 (Version None)
Quarter: 2008Q4

REPORT INFORMATION
  Report Type: 
  Country: None (occurrence: None)
  Receive Date: 20081030
  Receipt Date: 19970319
  Transmission Date: 20090506
  Serious: Yes (Hospitalization)
  Sender: FDA-Public Use
  Company Number: US-BAXTER-2008BH010869

PATIENT
  Age: 48 Year
  Sex: Female
  Weight: 94 kg

DRUGS (3)
  1. SODIUM CHLORIDE 0.9% IN PLASTIC CONTAINER [Suspect]
     Indication: BLOOD DONOR
     Dosage: DOSE UNIT:UNKNOWN
     Route: 042
  2. SODIUM CHLORIDE 0.9% IN PLASTIC CONTAINER [Suspect]
     Dosage: DOSE UNIT:UNKNOWN
     Route: 042
  3. ANTICOAGULANT CITRATE DEXTROSE [Concomitant]
     Indication: BLOOD DONOR
     Route: 065

REACTIONS (1)
  - SEPSIS [None]
